FAERS Safety Report 5978849-3 (Version None)
Quarter: 2008Q4

REPORT INFORMATION
  Report Type: 
  Country: None (occurrence: None)
  Receive Date: 20081204
  Receipt Date: 20081126
  Transmission Date: 20090506
  Serious: Yes (Hospitalization, Other)
  Sender: FDA-Public Use
  Company Number: PHHY2008BR26350

PATIENT
  Age: 59 Year
  Sex: Female

DRUGS (7)
  1. TEGRETOL [Suspect]
     Indication: EPILEPSY
     Dosage: 2 TABLETS DAILY
     Route: 048
  2. HIDANTAL [Concomitant]
     Indication: EPILEPSY
     Dosage: 100 MG, BID
     Route: 048
  3. RIVOTRIL [Concomitant]
     Indication: SLEEP DISORDER
     Dosage: 2 MG, QHS
     Route: 048
  4. OMEPRAZOLE [Concomitant]
     Indication: GASTRITIS
     Dosage: 30 MG, BID
     Route: 048
  5. NIMODIPINE [Concomitant]
     Dosage: 30 MG, BID
     Route: 048
  6. DIAZEPAM [Concomitant]
     Indication: NERVOUSNESS
     Dosage: 10 MG, TID
     Route: 048
  7. DIAZEPAM [Concomitant]
     Indication: ANXIETY

REACTIONS (9)
  - ABDOMINAL DISTENSION [None]
  - AFFECT LABILITY [None]
  - CONVULSION [None]
  - DIZZINESS [None]
  - DYSURIA [None]
  - HYPERTENSION [None]
  - MEMORY IMPAIRMENT [None]
  - NERVOUSNESS [None]
  - NEUROLOGICAL SYMPTOM [None]
